FAERS Safety Report 20866807 (Version 2)
Quarter: 2022Q3

REPORT INFORMATION
  Report Type: Spontaneous
  Country: JP (occurrence: JP)
  Receive Date: 20220524
  Receipt Date: 20220711
  Transmission Date: 20221027
  Serious: Yes (Death)
  Sender: FDA-Public Use
  Company Number: JP-MSD-2205JPN001840J

PATIENT
  Age: 58 Year
  Sex: Female
  Weight: 87 kg

DRUGS (8)
  1. KEYTRUDA [Suspect]
     Active Substance: PEMBROLIZUMAB
     Indication: Lung adenocarcinoma
     Dosage: 200 MILLIGRAM, ONCE
     Route: 041
     Dates: start: 20220207, end: 20220302
  2. PANVITAN [ASCORBIC ACID;CALCIUM PANTOTHENATE;CYANOCOBALAMIN;ERGOCALCIF [Concomitant]
     Dosage: UNK
     Route: 065
     Dates: start: 20220217
  3. MAGNESIUM OXIDE [Concomitant]
     Active Substance: MAGNESIUM OXIDE
     Dosage: UNK
     Route: 065
     Dates: start: 20220306
  4. DEXTROMETHORPHAN HYDROBROMIDE [Concomitant]
     Active Substance: DEXTROMETHORPHAN HYDROBROMIDE
     Dosage: UNK
     Route: 065
     Dates: start: 20220313, end: 20220324
  5. CARBOPLATIN [Concomitant]
     Active Substance: CARBOPLATIN
     Indication: Lung adenocarcinoma
     Dosage: UNK
     Route: 065
     Dates: start: 20220207, end: 20220207
  6. CARBOPLATIN [Concomitant]
     Active Substance: CARBOPLATIN
     Dosage: UNK
     Route: 065
     Dates: start: 20220302, end: 20220302
  7. PEMETREXED DISODIUM HEMIPENTAHYDRATE [Concomitant]
     Active Substance: PEMETREXED DISODIUM HEMIPENTAHYDRATE
     Indication: Lung adenocarcinoma
     Dosage: UNK
     Route: 065
     Dates: start: 20220207, end: 20220207
  8. PEMETREXED DISODIUM HEMIPENTAHYDRATE [Concomitant]
     Active Substance: PEMETREXED DISODIUM HEMIPENTAHYDRATE
     Dosage: UNK
     Route: 065
     Dates: start: 20220302, end: 20220302

REACTIONS (1)
  - Myocarditis [Fatal]

NARRATIVE: CASE EVENT DATE: 20220314
